FAERS Safety Report 19356621 (Version 1)
Quarter: 2021Q2

REPORT INFORMATION
  Report Type: Spontaneous
  Country: US (occurrence: US)
  Receive Date: 20210601
  Receipt Date: 20210601
  Transmission Date: 20210717
  Serious: No
  Sender: FDA-Public Use
  Company Number: US-TARO-2020TAR00892

PATIENT

DRUGS (1)
  1. IMIQUIMOD CREAM 5% [Suspect]
     Active Substance: IMIQUIMOD
     Indication: ANOGENITAL WARTS
     Dosage: UNK, 3X/WEEK, AT NIGHT BEFORE BED
     Route: 061
     Dates: start: 2019

REACTIONS (3)
  - Dysuria [Not Recovered/Not Resolved]
  - Genital pain [Not Recovered/Not Resolved]
  - Genital burning sensation [Not Recovered/Not Resolved]

NARRATIVE: CASE EVENT DATE: 20200419
